FAERS Safety Report 8931835 (Version 2)
Quarter: 2012Q4

REPORT INFORMATION
  Report Type: 
  Country: IT (occurrence: IT)
  Receive Date: 20121128
  Receipt Date: 20121212
  Transmission Date: 20130627
  Serious: Yes (Other)
  Sender: FDA-Public Use
  Company Number: IT-ELI_LILLY_AND_COMPANY-IT201210005507

PATIENT
  Age: 77 Year
  Sex: Female
  Weight: 74 kg

DRUGS (6)
  1. HUMALOG 50% LISPRO, 50% NPL [Suspect]
     Indication: TYPE 2 DIABETES MELLITUS
     Dosage: UNK, unknown
     Dates: end: 20120406
  2. HUMALOG 50% LISPRO, 50% NPL [Suspect]
     Dosage: 44 IU, qd
     Route: 048
     Dates: start: 20120406, end: 20120619
  3. HUMALOG 50% LISPRO, 50% NPL [Suspect]
     Dosage: 38 IU, qd
  4. METFORAL [Concomitant]
     Indication: TYPE 2 DIABETES MELLITUS
     Dosage: 850 mg, tid
     Route: 048
  5. EUTIROX [Concomitant]
     Indication: HYPOTHYROIDISM
     Dosage: 125 ug, UNK
     Route: 048
  6. LOBIVON [Concomitant]
     Indication: HYPERTENSION
     Dosage: 5 mg, UNK
     Route: 048

REACTIONS (4)
  - Hypoglycaemia [Recovered/Resolved]
  - Malaise [Recovered/Resolved]
  - Hypoglycaemia [Unknown]
  - Glycosylated haemoglobin increased [Unknown]
